FAERS Safety Report 9467974 (Version 1)
Quarter: 2013Q3

REPORT INFORMATION
  Report Type: Report from Study
  Country: US (occurrence: US)
  Receive Date: 20130821
  Receipt Date: 20130821
  Transmission Date: 20140515
  Serious: Yes (Other)
  Sender: FDA-Public Use
  Company Number: US-US-EMD SERONO, INC.-7231397

PATIENT
  Sex: Female

DRUGS (2)
  1. REBIF [Suspect]
     Indication: PRODUCT USED FOR UNKNOWN INDICATION
     Dates: start: 2002
  2. REBIF [Suspect]
     Dates: start: 20121022

REACTIONS (4)
  - Renal impairment [Unknown]
  - Osteoarthritis [Recovering/Resolving]
  - Arthropathy [Recovering/Resolving]
  - Influenza like illness [Not Recovered/Not Resolved]
